FAERS Safety Report 8766747 (Version 5)
Quarter: 2012Q4

REPORT INFORMATION
  Report Type: Report from Study
  Country: HU (occurrence: HU)
  Receive Date: 20120904
  Receipt Date: 20121029
  Transmission Date: 20130627
  Serious: Yes (Hospitalization, Other)
  Sender: FDA-Public Use
  Company Number: HU-BRISTOL-MYERS SQUIBB COMPANY-16895088

PATIENT
  Age: 74 Year
  Sex: Female

DRUGS (10)
  1. IPILIMUMAB [Suspect]
     Indication: METASTATIC MALIGNANT MELANOMA
     Dosage: 12-12Jul12, 04-04Aug12
     Route: 042
     Dates: start: 20120712, end: 20121004
  2. DIMETINDENE [Concomitant]
     Dates: start: 20120804
  3. METHYLPREDNISOLONE [Concomitant]
  4. FAMOTIDINE [Concomitant]
  5. POTASSIUM CHLORIDE [Concomitant]
  6. CHLOROPYRAMINE [Concomitant]
  7. FERROUS SULFATE [Concomitant]
  8. CALCIUM GLUCONATE [Concomitant]
  9. CARVEDILOL [Concomitant]
  10. PERINDOPRIL [Concomitant]

REACTIONS (2)
  - Periorbital oedema [Not Recovered/Not Resolved]
  - Blood corticotrophin decreased [Not Recovered/Not Resolved]
